FAERS Safety Report 23249515 (Version 1)
Quarter: 2023Q4

REPORT INFORMATION
  Report Type: Spontaneous
  Country: FR (occurrence: FR)
  Receive Date: 20231201
  Receipt Date: 20231201
  Transmission Date: 20240109
  Serious: Yes (Disabling)
  Sender: FDA-Public Use
  Company Number: None

PATIENT
  Age: 64 Year
  Sex: Female
  Weight: 55 kg

DRUGS (1)
  1. CIPROFLOXACIN HYDROCHLORIDE [Suspect]
     Active Substance: CIPROFLOXACIN HYDROCHLORIDE
     Indication: Urinary tract infection
     Dosage: UNK (1 COMPRIM? MATIN ET SOIR)
     Route: 048
     Dates: start: 20180302, end: 20180307

REACTIONS (1)
  - Chronic fatigue syndrome [Not Recovered/Not Resolved]

NARRATIVE: CASE EVENT DATE: 20190204
